FAERS Safety Report 16670258 (Version 2)
Quarter: 2019Q3

REPORT INFORMATION
  Report Type: Report from Study
  Country: BR (occurrence: BR)
  Receive Date: 20190805
  Receipt Date: 20190809
  Transmission Date: 20191004
  Serious: Yes (Other)
  Sender: FDA-Public Use
  Company Number: BR-SHIRE-BR201910141

PATIENT

DRUGS (2)
  1. HYQVIA [Suspect]
     Active Substance: HUMAN IMMUNOGLOBULIN G\HYALURONIDASE RECOMBINANT HUMAN
     Indication: PRIMARY IMMUNODEFICIENCY SYNDROME
     Dosage: 200 MILLILITER, EVERY 4 WK ( EVERY 28 DAYS)
     Route: 058
     Dates: end: 20190315
  2. HYQVIA [Suspect]
     Active Substance: HUMAN IMMUNOGLOBULIN G\HYALURONIDASE RECOMBINANT HUMAN
     Dosage: 300 MILLILITER, EVERY 4 WK ( EVERY 28 DAYS)
     Route: 058

REACTIONS (4)
  - Influenza [Unknown]
  - Pharyngitis [Unknown]
  - Sinusitis [Unknown]
  - Headache [Recovered/Resolved]
